FAERS Safety Report 8733725 (Version 2)
Quarter: 2012Q4

REPORT INFORMATION
  Report Type: 
  Country: US (occurrence: US)
  Receive Date: 20120821
  Receipt Date: 20121207
  Transmission Date: 20130627
  Serious: Yes (Hospitalization)
  Sender: FDA-Public Use
  Company Number: US-BAYER-2012-083656

PATIENT
  Age: 24 Year
  Sex: Female
  Weight: 61 kg

DRUGS (17)
  1. YAZ [Suspect]
     Indication: ACNE
     Dosage: UNK
     Dates: start: 200611, end: 200811
  2. YAZ [Suspect]
     Indication: PREMENSTRUAL SYNDROME
  3. YASMIN [Suspect]
     Indication: PREMENSTRUAL SYNDROME
     Dosage: UNK
     Dates: start: 200611, end: 200811
  4. YASMIN [Suspect]
     Indication: ACNE
  5. ANTIBIOTICS [Concomitant]
     Dosage: Various times throughout life
  6. MIGRAINE MEDICINE/MOTRIN 800 [Concomitant]
     Dosage: As needed
  7. MINOCYCLINE [Concomitant]
  8. ST. JOHN^S WORT [Concomitant]
  9. THYROID MEDICINES [Concomitant]
     Dosage: UNK
     Dates: start: 2004
  10. AMOUR THYROID [Concomitant]
     Indication: THYROID DISORDER NOS
     Dosage: UNK
     Dates: start: 2008
  11. ALPRAZOLAM [Concomitant]
     Dosage: UNK
     Dates: start: 20090716
  12. CITALOPRAM [Concomitant]
     Dosage: UNK
     Dates: start: 20090716
  13. MULTIVITAMIN [Concomitant]
  14. VITAMIN B [Concomitant]
  15. GLUCOSAMINE AND CHONDROITIN [Concomitant]
  16. NUVARING [Concomitant]
     Indication: CONTRACEPTION
     Dosage: UNK
     Dates: start: 200811, end: 200907
  17. NUVARING [Concomitant]
     Indication: MENSTRUAL CYCLE MANAGEMENT

REACTIONS (10)
  - Thrombosis [None]
  - Pulmonary embolism [None]
  - Axillary vein thrombosis [None]
  - Subclavian vein thrombosis [None]
  - Injury [None]
  - Pain [None]
  - Emotional distress [None]
  - Pain in extremity [None]
  - Oedema peripheral [None]
  - Quality of life decreased [None]
